FAERS Safety Report 9443814 (Version 3)
Quarter: 2014Q2

REPORT INFORMATION
  Report Type: Report from Study
  Country: AU (occurrence: AU)
  Receive Date: 20130806
  Receipt Date: 20140508
  Transmission Date: 20141212
  Serious: Yes (Other)
  Sender: FDA-Public Use
  Company Number: AU-ROCHE-1255335

PATIENT
  Age: 74 Year
  Sex: Female
  Weight: 74.6 kg

DRUGS (16)
  1. RITUXIMAB [Suspect]
     Indication: B-CELL LYMPHOMA
     Dosage: DOSE OF LAST RITUXIMAB: 660 MG ON 03/APR/2013
     Route: 042
     Dates: start: 20110803, end: 20130724
  2. ATIVAN [Concomitant]
     Indication: ANXIETY
     Route: 065
     Dates: start: 2009
  3. EFEXOR [Concomitant]
     Indication: DEPRESSION
     Route: 065
     Dates: start: 1991
  4. NEO-B12 [Concomitant]
     Indication: VITAMIN B12 DEFICIENCY
     Route: 065
     Dates: start: 200912, end: 201104
  5. OROXINE [Concomitant]
     Indication: HYPOTHYROIDISM
     Route: 065
     Dates: start: 1986
  6. TEMAZE [Concomitant]
     Indication: INSOMNIA
     Route: 065
     Dates: start: 1996
  7. PARACETAMOL [Concomitant]
     Indication: PREMEDICATION
     Route: 065
     Dates: start: 20110914, end: 20131112
  8. LORATADINE [Concomitant]
     Indication: PREMEDICATION
     Route: 065
     Dates: start: 20110914, end: 20131112
  9. HYDROCORTISONE [Concomitant]
     Indication: PREMEDICATION
     Route: 065
     Dates: start: 20120307, end: 20131112
  10. NORFLOXACIN [Concomitant]
     Indication: URINARY TRACT INFECTION
     Route: 065
     Dates: start: 20130628, end: 20130702
  11. METOCLOPRAMIDE [Concomitant]
     Indication: NAUSEA
     Route: 065
     Dates: start: 20130626, end: 20130627
  12. ENOXAPARIN [Concomitant]
     Route: 065
     Dates: start: 20130627, end: 20130627
  13. VITAMIN B12 [Concomitant]
     Route: 065
     Dates: start: 20130417
  14. VITAMIN C [Concomitant]
     Route: 065
     Dates: start: 20130918
  15. LOPERAMIDE HYDROCHLORIDE [Concomitant]
     Route: 065
     Dates: start: 20130617, end: 20130626
  16. OLIVE LEAF EXTRACT [Concomitant]
     Route: 065
     Dates: start: 20130704, end: 20140109

REACTIONS (1)
  - Squamous cell carcinoma of skin [Recovered/Resolved]
